FAERS Safety Report 20530892 (Version 1)
Quarter: 2022Q1

REPORT INFORMATION
  Report Type: Spontaneous
  Country: US (occurrence: US)
  Receive Date: 20220301
  Receipt Date: 20220301
  Transmission Date: 20220423
  Serious: No
  Sender: FDA-Public Use
  Company Number: US-IGSA-BIG0013680

PATIENT
  Age: 61 Year
  Sex: Male
  Weight: 84 kg

DRUGS (15)
  1. PROLASTIN-C LIQUID [Suspect]
     Active Substance: .ALPHA.1-PROTEINASE INHIBITOR HUMAN
     Indication: Alpha-1 antitrypsin deficiency
     Dosage: 120 MILLIGRAM/KILOGRAM, Q.2WK.
     Route: 042
     Dates: start: 20210209
  2. PROLASTIN-C LIQUID [Suspect]
     Active Substance: .ALPHA.1-PROTEINASE INHIBITOR HUMAN
     Dosage: 120 MILLIGRAM/KILOGRAM, Q.2WK.
     Route: 042
     Dates: start: 20210309
  3. PROLASTIN-C LIQUID [Suspect]
     Active Substance: .ALPHA.1-PROTEINASE INHIBITOR HUMAN
     Dosage: 120 MILLIGRAM/KILOGRAM, Q.2WK.
     Route: 042
     Dates: start: 20190319
  4. COVID-19 VACCINE NOS [Suspect]
     Active Substance: COVID-19 VACCINE NOS
     Indication: COVID-19 prophylaxis
     Dosage: UNK UNK, SINGLE
     Dates: start: 20210205, end: 20210205
  5. PREDNISONE [Concomitant]
     Active Substance: PREDNISONE
  6. BACTRIM DS [Concomitant]
     Active Substance: SULFAMETHOXAZOLE\TRIMETHOPRIM
  7. METOPROLOL SUCCINATE [Concomitant]
     Active Substance: METOPROLOL SUCCINATE
  8. CALCIUM\VITAMIN D [Concomitant]
     Active Substance: CALCIUM\VITAMIN D
  9. TAMSULOSIN [Concomitant]
     Active Substance: TAMSULOSIN
  10. AZATHIOPRINE [Concomitant]
     Active Substance: AZATHIOPRINE
  11. ALENDRONATE [Concomitant]
     Active Substance: ALENDRONATE SODIUM
  12. SINGULAIR [Concomitant]
     Active Substance: MONTELUKAST SODIUM
  13. AZITHROMYCIN [Concomitant]
     Active Substance: AZITHROMYCIN
  14. SIMVASTATIN [Concomitant]
     Active Substance: SIMVASTATIN
  15. TACROLIMUS [Concomitant]
     Active Substance: TACROLIMUS

REACTIONS (10)
  - Chills [Recovered/Resolved]
  - Hypertension [Recovered/Resolved]
  - Neck pain [Recovered/Resolved]
  - Pain [Recovered/Resolved]
  - Diarrhoea [Recovered/Resolved]
  - Headache [Recovered/Resolved]
  - Decreased appetite [Recovered/Resolved]
  - Tremor [Recovered/Resolved]
  - Dyspnoea [Recovered/Resolved]
  - Intentional dose omission [Recovered/Resolved]

NARRATIVE: CASE EVENT DATE: 20210201
